FAERS Safety Report 17723475 (Version 1)
Quarter: 2020Q2

REPORT INFORMATION
  Report Type: Spontaneous
  Country: US (occurrence: US)
  Receive Date: 20200429
  Receipt Date: 20200429
  Transmission Date: 20200714
  Serious: Yes (Life-Threatening)
  Sender: FDA-Public Use
  Company Number: None

PATIENT
  Age: 63 Year
  Sex: Male
  Weight: 67.5 kg

DRUGS (9)
  1. GABAPENTIN. [Concomitant]
     Active Substance: GABAPENTIN
  2. BUMEX [Concomitant]
     Active Substance: BUMETANIDE
  3. RANITIDINE. [Suspect]
     Active Substance: RANITIDINE
     Indication: GASTROOESOPHAGEAL REFLUX DISEASE
     Route: 048
  4. DECADRON [Concomitant]
     Active Substance: DEXAMETHASONE
  5. PROBIOTICS [Concomitant]
     Active Substance: PROBIOTICS NOS
  6. MORPHINE [Concomitant]
     Active Substance: MORPHINE
  7. LOMOTIL [Concomitant]
     Active Substance: ATROPINE SULFATE\DIPHENOXYLATE HYDROCHLORIDE
  8. TRAZODONE [Concomitant]
     Active Substance: TRAZODONE HYDROCHLORIDE
  9. TURMERIC [Concomitant]
     Active Substance: HERBALS\TURMERIC

REACTIONS (1)
  - Pancreatic carcinoma metastatic [None]

NARRATIVE: CASE EVENT DATE: 20180614
